FAERS Safety Report 5448839-8 (Version None)
Quarter: 2007Q3

REPORT INFORMATION
  Report Type: 
  Country: None (occurrence: None)
  Receive Date: 20070911
  Receipt Date: 20070713
  Transmission Date: 20080115
  Serious: No
  Sender: FDA-Public Use
  Company Number: US-BRISTOL-MYERS SQUIBB COMPANY-13846563

PATIENT
  Sex: Male

DRUGS (1)
  1. EMSAM [Suspect]
     Route: 062

REACTIONS (1)
  - MEDICATION ERROR [None]
